FAERS Safety Report 6969325-X (Version None)
Quarter: 2010Q3

REPORT INFORMATION
  Report Type: 
  Country: None (occurrence: None)
  Receive Date: 20100907
  Receipt Date: 20100827
  Transmission Date: 20110219
  Serious: Yes (Hospitalization)
  Sender: FDA-Public Use
  Company Number: FR-GILEAD-2010-0031377

PATIENT
  Sex: Male

DRUGS (5)
  1. TRUVADA [Suspect]
     Indication: HIV INFECTION
     Dates: start: 20060216
  2. REYATAZ [Suspect]
     Indication: HIV INFECTION
     Dates: start: 20041201, end: 20091209
  3. NORVIR [Concomitant]
     Indication: HIV INFECTION
     Dates: start: 20041201, end: 20091209
  4. FENOFIBRATE [Concomitant]
     Indication: HYPERTRIGLYCERIDAEMIA
     Dates: start: 20060216
  5. LEDERFOLINE [Concomitant]
     Indication: FOLATE DEFICIENCY

REACTIONS (2)
  - CHOLECYSTITIS [None]
  - CHOLELITHIASIS [None]
